FAERS Safety Report 10537112 (Version 1)
Quarter: 2014Q4

REPORT INFORMATION
  Report Type: Report from Study
  Country: US (occurrence: US)
  Receive Date: 20141022
  Receipt Date: 20141022
  Transmission Date: 20150529
  Serious: Yes (Other)
  Sender: FDA-Public Use
  Company Number: US-GILEAD-2014-0119295

PATIENT
  Age: 63 Year
  Sex: Male

DRUGS (2)
  1. SOFOSBUVIR [Suspect]
     Active Substance: SOFOSBUVIR
     Indication: CHRONIC HEPATITIS C
     Dosage: 400 MG, UNK
     Route: 065
  2. RIBAVIRIN. [Concomitant]
     Active Substance: RIBAVIRIN

REACTIONS (2)
  - Hypoacusis [Unknown]
  - Neoplasm malignant [Unknown]
